FAERS Safety Report 6148778-3 (Version None)
Quarter: 2009Q2

REPORT INFORMATION
  Report Type: 
  Country: None (occurrence: None)
  Receive Date: 20090408
  Receipt Date: 20090331
  Transmission Date: 20091009
  Serious: Yes (Hospitalization)
  Sender: FDA-Public Use
  Company Number: US-ELI_LILLY_AND_COMPANY-US200901001650

PATIENT
  Age: 22 Year
  Sex: Male

DRUGS (2)
  1. ZYPREXA [Suspect]
     Indication: SCHIZOPHRENIA
     Dosage: 40 MG, UNK
  2. LITHIUM CARBONATE [Concomitant]
     Indication: SCHIZOPHRENIA
     Dosage: 300 MG, 3/D

REACTIONS (3)
  - BODY TEMPERATURE INCREASED [None]
  - OVERDOSE [None]
  - RASH GENERALISED [None]
